FAERS Safety Report 23738898 (Version 7)
Quarter: 2024Q4

REPORT INFORMATION
  Report Type: Report from Study
  Country: CA (occurrence: CA)
  Receive Date: 20240413
  Receipt Date: 20241118
  Transmission Date: 20250115
  Serious: Yes (Hospitalization, Other)
  Sender: ROCHE
  Company Number: CA-ROCHE-2457175

PATIENT
  Age: 48 Year
  Sex: Male

DRUGS (10)
  1. OCREVUS [Suspect]
     Active Substance: OCRELIZUMAB
     Indication: Relapsing-remitting multiple sclerosis
     Dosage: MORE DOSAGE INFORMATION IS 300 MG AT DAY 0 AND 14, THEN 600 MG EVERY 6 MONTHS
     Route: 042
     Dates: start: 20190911
  2. TYLENOL [Concomitant]
     Active Substance: ACETAMINOPHEN
  3. ROSUVASTATIN [Concomitant]
     Active Substance: ROSUVASTATIN
  4. LITHIUM [Concomitant]
     Active Substance: LITHIUM
  5. BUPROPION [Concomitant]
     Active Substance: BUPROPION
     Dosage: XL 3 OF THE 150 MG IN THE MORING
  6. AMLODIPINE [Concomitant]
     Active Substance: AMLODIPINE BESYLATE
  7. OLANZAPINE [Concomitant]
     Active Substance: OLANZAPINE
     Dosage: 1 IN THE MORNING AND 2 AT NIGHT
  8. PREGABALIN [Concomitant]
     Active Substance: PREGABALIN
  9. ASPIRIN [Concomitant]
     Active Substance: ASPIRIN
  10. SENNOSIDES A AND B [Concomitant]
     Active Substance: SENNOSIDES A AND B

REACTIONS (13)
  - Aortic aneurysm [Unknown]
  - Infection [Unknown]
  - Monoplegia [Unknown]
  - Urosepsis [Not Recovered/Not Resolved]
  - Fatigue [Not Recovered/Not Resolved]
  - Nasopharyngitis [Unknown]
  - Somnolence [Unknown]
  - Fall [Unknown]
  - Balance disorder [Not Recovered/Not Resolved]
  - Gait disturbance [Not Recovered/Not Resolved]
  - Memory impairment [Not Recovered/Not Resolved]
  - Headache [Recovered/Resolved]
  - Brain fog [Unknown]

NARRATIVE: CASE EVENT DATE: 20191001
